FAERS Safety Report 23306870 (Version 1)
Quarter: 2023Q4

REPORT INFORMATION
  Report Type: Spontaneous
  Country: US (occurrence: US)
  Receive Date: 20231218
  Receipt Date: 20231218
  Transmission Date: 20240110
  Serious: No
  Sender: FDA-Public Use
  Company Number: US-RECKITT BENCKISER HEALTHCARE INT LIMITED-RB-106415-2022

PATIENT
  Age: 80 Year
  Sex: Female

DRUGS (2)
  1. DELSYM [Suspect]
     Active Substance: DEXTROMETHORPHAN
     Indication: Cough
     Dosage: UNKNOWN
     Route: 048
     Dates: start: 20221117
  2. DELSYM [Suspect]
     Active Substance: DEXTROMETHORPHAN
     Indication: Cystitis

REACTIONS (1)
  - Lip exfoliation [Unknown]

NARRATIVE: CASE EVENT DATE: 20221117
